FAERS Safety Report 4568013-7 (Version None)
Quarter: 2005Q1

REPORT INFORMATION
  Report Type: 
  Country: None (occurrence: None)
  Receive Date: 20050128
  Receipt Date: 20050117
  Transmission Date: 20050727
  Serious: Yes (Hospitalization)
  Sender: FDA-Public Use
  Company Number: HQWYE587226APR04

PATIENT
  Age: 86 Year
  Sex: Female

DRUGS (5)
  1. PROTONIX [Suspect]
     Indication: ULCER
     Dosage: SEE IMAGE
     Route: 048
     Dates: start: 20040101, end: 20040101
  2. PROTONIX [Suspect]
     Indication: ULCER
     Dosage: SEE IMAGE
     Route: 048
     Dates: start: 20040401
  3. HYDROCHLOROTHIAZIDE [Concomitant]
  4. TOPROL-XL [Concomitant]
  5. COLACE (DOCUSATE SODIUM) [Concomitant]

REACTIONS (9)
  - ABDOMINAL PAIN [None]
  - ABDOMINAL RIGIDITY [None]
  - ASTHENIA [None]
  - BILE DUCT STENOSIS [None]
  - DIARRHOEA [None]
  - MOVEMENT DISORDER [None]
  - MUSCULAR WEAKNESS [None]
  - NERVOUSNESS [None]
  - PARAESTHESIA [None]
